FAERS Safety Report 8143629-X (Version None)
Quarter: 2012Q1

REPORT INFORMATION
  Report Type: 
  Country: None (occurrence: None)
  Receive Date: 20120217
  Receipt Date: 20120207
  Transmission Date: 20120608
  Serious: Yes (Hospitalization)
  Sender: FDA-Public Use
  Company Number: US-SANOFI-AVENTIS-2012SA007977

PATIENT
  Age: 47 Year
  Sex: Male

DRUGS (1)
  1. RILUTEK [Suspect]
     Dates: start: 20100101

REACTIONS (1)
  - RESPIRATORY FAILURE [None]
